FAERS Safety Report 8828653 (Version 1)
Quarter: 2012Q4

REPORT INFORMATION
  Report Type: 
  Country: IT (occurrence: IT)
  Receive Date: 20121005
  Receipt Date: 20121005
  Transmission Date: 20130627
  Serious: Yes (Other)
  Sender: FDA-Public Use
  Company Number: IT-MYLANLABS-2012S1019996

PATIENT
  Age: 93 Year
  Sex: Female
  Weight: 62 kg

DRUGS (1)
  1. SERTRALINE [Suspect]
     Indication: PRODUCT USED FOR UNKNOWN INDICATION
     Dates: start: 20110415, end: 20110504

REACTIONS (1)
  - Psychomotor hyperactivity [Recovering/Resolving]
